FAERS Safety Report 5693818-9 (Version None)
Quarter: 2008Q2

REPORT INFORMATION
  Report Type: 
  Country: None (occurrence: None)
  Receive Date: 20080403
  Receipt Date: 20080327
  Transmission Date: 20081010
  Serious: Yes (Hospitalization)
  Sender: FDA-Public Use
  Company Number: FR-SANOFI-SYNTHELABO-A02200800888

PATIENT
  Age: 70 Year
  Sex: Male

DRUGS (7)
  1. PLAVIX [Suspect]
     Indication: CORONARY ARTERIAL STENT INSERTION
     Route: 048
     Dates: start: 20071206, end: 20071218
  2. CRESTOR [Concomitant]
     Indication: ARTERIOSCLEROSIS CORONARY ARTERY
     Route: 048
     Dates: start: 20071206, end: 20071217
  3. CRESTOR [Concomitant]
     Route: 048
     Dates: start: 20071222
  4. ASPEGIC 1000 [Concomitant]
     Indication: CORONARY ARTERIAL STENT INSERTION
     Route: 048
     Dates: start: 20071206
  5. LASILIX [Concomitant]
     Indication: HYPERTENSION
     Route: 048
  6. ATACAND [Concomitant]
     Indication: HYPERTENSION
     Route: 048
  7. AMLOR [Concomitant]
     Indication: HYPERTENSION
     Route: 048

REACTIONS (5)
  - ARTHRALGIA [None]
  - INFLAMMATION [None]
  - PRURITUS [None]
  - PYREXIA [None]
  - URTICARIA [None]
